FAERS Safety Report 7368972-3 (Version None)
Quarter: 2011Q1

REPORT INFORMATION
  Report Type: 
  Country: None (occurrence: None)
  Receive Date: 20110323
  Receipt Date: 20110323
  Transmission Date: 20110831
  Serious: Yes (Hospitalization)
  Sender: FDA-Public Use
  Company Number: US-ROXANE LABORATORIES, INC.-2011-RO-00248RO

PATIENT
  Sex: Female

DRUGS (4)
  1. AZATHIOPRINE [Suspect]
     Indication: CROHN'S DISEASE
     Dosage: 50 MG
     Route: 048
     Dates: start: 20110104
  2. AZATHIOPRINE [Suspect]
     Dosage: 75 MG
     Route: 048
     Dates: start: 20110104
  3. CIPROFLOXACIN [Concomitant]
  4. ASACOL [Concomitant]

REACTIONS (2)
  - DRUG LEVEL BELOW THERAPEUTIC [None]
  - CROHN'S DISEASE [None]
